FAERS Safety Report 25759654 (Version 4)
Quarter: 2025Q4

REPORT INFORMATION
  Report Type: Spontaneous
  Country: MY (occurrence: MY)
  Receive Date: 20250904
  Receipt Date: 20251006
  Transmission Date: 20260117
  Serious: Yes (Other)
  Sender: SANOFI AVENTIS
  Company Number: MY-SANOFI-02640690

PATIENT
  Age: 40 Year
  Sex: Female

DRUGS (7)
  1. DUPIXENT [Suspect]
     Active Substance: DUPILUMAB
     Indication: Asthma
     Dosage: 600 MG
     Route: 065
     Dates: start: 20250812, end: 202508
  2. DUPIXENT [Suspect]
     Active Substance: DUPILUMAB
     Dosage: 300 MG
     Dates: start: 20250930
  3. PANTOPRAZOLE [Concomitant]
     Active Substance: PANTOPRAZOLE
  4. AZITHROMYCIN [Concomitant]
     Active Substance: AZITHROMYCIN
  5. TIOTROPIUM [Concomitant]
     Active Substance: TIOTROPIUM
  6. HYDROCORTISONE [Concomitant]
     Active Substance: HYDROCORTISONE
  7. MAXOLON [Concomitant]
     Active Substance: METOCLOPRAMIDE HYDROCHLORIDE

REACTIONS (9)
  - Bell^s palsy [Recovered/Resolved]
  - Facial asymmetry [Recovering/Resolving]
  - Palpitations [Recovered/Resolved]
  - Asthenia [Not Recovered/Not Resolved]
  - Dyspnoea [Recovered/Resolved]
  - Hot flush [Unknown]
  - Wheezing [Unknown]
  - Rhonchi [Unknown]
  - Headache [Unknown]

NARRATIVE: CASE EVENT DATE: 20250812
